FAERS Safety Report 4544227-7 (Version None)
Quarter: 2005Q1

REPORT INFORMATION
  Report Type: 
  Country: None (occurrence: None)
  Receive Date: 20050104
  Receipt Date: 20041228
  Transmission Date: 20050727
  Serious: Yes (Other)
  Sender: FDA-Public Use
  Company Number: US-GLAXOSMITHKLINE-A0538655A

PATIENT
  Age: 65 Year
  Sex: Female
  Weight: 54.1 kg

DRUGS (2)
  1. ECOTRIN REGULAR STRENGTH TABLETS [Suspect]
     Indication: HEADACHE
     Route: 048
     Dates: start: 19990101, end: 20040101
  2. CAFFEINE [Concomitant]
     Indication: HEADACHE
     Route: 048

REACTIONS (3)
  - EYE HAEMORRHAGE [None]
  - EYE IRRITATION [None]
  - EYE PRURITUS [None]
